FAERS Safety Report 5272753-4 (Version None)
Quarter: 2007Q1

REPORT INFORMATION
  Report Type: 
  Country: None (occurrence: None)
  Receive Date: 20070322
  Receipt Date: 20070320
  Transmission Date: 20070707
  Serious: Yes (Hospitalization)
  Sender: FDA-Public Use
  Company Number: US-GLAXOSMITHKLINE-A0643935A

PATIENT
  Age: 52 Year
  Sex: Female

DRUGS (4)
  1. ADVAIR DISKUS 100/50 [Suspect]
     Indication: ASTHMA
     Dosage: 1PUFF PER DAY
     Route: 055
     Dates: end: 20070226
  2. LOTENSIN [Concomitant]
  3. ALBUTEROL [Concomitant]
  4. PREMARIN [Concomitant]

REACTIONS (2)
  - EYE DISORDER [None]
  - MACULOPATHY [None]
